FAERS Safety Report 5815958-3 (Version None)
Quarter: 2008Q3

REPORT INFORMATION
  Report Type: 
  Country: None (occurrence: None)
  Receive Date: 20080721
  Receipt Date: 20080709
  Transmission Date: 20090109
  Serious: Yes (Other)
  Sender: FDA-Public Use
  Company Number: PHBS2008US05083

PATIENT
  Age: 10 Year
  Sex: Male

DRUGS (2)
  1. CARBAMAZEPINE [Suspect]
     Indication: COMPLEX PARTIAL SEIZURES
  2. CARBAMAZEPINE [Suspect]
     Indication: PETIT MAL EPILEPSY

REACTIONS (6)
  - ANGER [None]
  - ANTISOCIAL BEHAVIOUR [None]
  - IRRITABILITY [None]
  - LOSS OF CONSCIOUSNESS [None]
  - POST CONCUSSION SYNDROME [None]
  - TRAUMATIC BRAIN INJURY [None]
